FAERS Safety Report 15603377 (Version 8)
Quarter: 2020Q1

REPORT INFORMATION
  Report Type: Report from Study
  Country: US (occurrence: US)
  Receive Date: 20181109
  Receipt Date: 20200205
  Transmission Date: 20200409
  Serious: Yes (Death, Hospitalization, Other)
  Sender: FDA-Public Use
  Company Number: US-ACTELION-A-NJ2018-181453

PATIENT
  Age: 43 Year
  Sex: Male
  Weight: 64.4 kg

DRUGS (34)
  1. VITAMIN D3 [Concomitant]
     Active Substance: CHOLECALCIFEROL
     Dosage: 1 ML, QD
     Route: 048
  2. OXYGEN. [Concomitant]
     Active Substance: OXYGEN
     Dosage: 5 L
  3. CHOLECALCIFEROL [Concomitant]
     Active Substance: CHOLECALCIFEROL
     Dosage: 2000 UNITS, QD
  4. FOLIC ACID. [Concomitant]
     Active Substance: FOLIC ACID
     Dosage: 1 MG, BEDTIME
  5. PANCRELIPASE. [Concomitant]
     Active Substance: PANCRELIPASE
     Dosage: 1200 UNITS, TID
  6. THIAMINE. [Concomitant]
     Active Substance: THIAMINE
     Dosage: 100 MG, QD
     Route: 048
  7. POTASSIUM CHLORIDE. [Concomitant]
     Active Substance: POTASSIUM CHLORIDE
     Dosage: 10 MEQ
  8. IOPAMIDOL [Concomitant]
     Active Substance: IOPAMIDOL
     Dosage: 80 ML
     Dates: start: 20190620
  9. CHOLECALCIFEROL [Concomitant]
     Active Substance: CHOLECALCIFEROL
     Dosage: 5000 UNITS AT BEDTIME
     Route: 048
  10. LORAZEPAM. [Concomitant]
     Active Substance: LORAZEPAM
     Dosage: 1.5 ML, PRN, Q1HR
  11. ONDANSETRON [Concomitant]
     Active Substance: ONDANSETRON
     Indication: NAUSEA
     Dosage: 4 MG, PRN
     Route: 048
  12. CREON [Concomitant]
     Active Substance: PANCRELIPASE AMYLASE\PANCRELIPASE LIPASE\PANCRELIPASE PROTEASE
     Dosage: 12000 UNITS, TID
  13. TYLENOL [Concomitant]
     Active Substance: ACETAMINOPHEN
     Indication: PYREXIA
  14. ADEMPAS [Suspect]
     Active Substance: RIOCIGUAT
     Indication: PULMONARY HYPERTENSION
     Dosage: 2.5 MG, TID
     Route: 048
  15. LORAZEPAM. [Concomitant]
     Active Substance: LORAZEPAM
     Dosage: 2 ML, PRN, Q1HR
  16. TORSEMIDE. [Concomitant]
     Active Substance: TORSEMIDE
     Dosage: 10 MG, BID
  17. MYCOPHENOLATE [Concomitant]
     Active Substance: MYCOPHENOLIC ACID
     Dosage: 1000 MG, BID
  18. OXYGEN. [Concomitant]
     Active Substance: OXYGEN
     Dosage: 4-5 L AT BASELINE
  19. CALCIUM CARBONATE. [Concomitant]
     Active Substance: CALCIUM CARBONATE
     Dosage: 5 ML, TID
     Route: 048
  20. CHLORDIAZEPOXIDE. [Concomitant]
     Active Substance: CHLORDIAZEPOXIDE
     Indication: WITHDRAWAL SYNDROME
     Dosage: 25 MG, TID
     Route: 048
  21. LORAZEPAM. [Concomitant]
     Active Substance: LORAZEPAM
     Indication: ANXIETY
     Dosage: 05 ML, PRN, Q1HR
  22. THERAGRAN-M [Concomitant]
     Active Substance: VITAMINS
     Dosage: UNK, QD
     Route: 048
  23. TYLENOL [Concomitant]
     Active Substance: ACETAMINOPHEN
     Indication: PAIN
     Dosage: 500 MG, PRN, EVERY 4 HOURS
  24. MYCOPHENOLATE MOFETIL. [Concomitant]
     Active Substance: MYCOPHENOLATE MOFETIL
     Dosage: 1000 MG, BID
     Route: 048
  25. OPSUMIT [Suspect]
     Active Substance: MACITENTAN
     Indication: PULMONARY ARTERIAL HYPERTENSION
     Dosage: 10 MG, QD
     Route: 048
     Dates: start: 20180207
  26. CITALOPRAM [Concomitant]
     Active Substance: CITALOPRAM HYDROBROMIDE
     Dosage: 10 MG, QD
  27. LOPERMIDE [Concomitant]
     Indication: DIARRHOEA
     Dosage: 2 MG, PRN
  28. PREDNISOLONE. [Concomitant]
     Active Substance: PREDNISOLONE
     Dosage: 5 MG, BID, 14 DAYS
     Route: 048
  29. PANTOPRAZOLE [Concomitant]
     Active Substance: PANTOPRAZOLE
     Dosage: 40 MG, QD
  30. TORSEMIDE. [Concomitant]
     Active Substance: TORSEMIDE
     Dosage: 20 MG, QD
     Route: 048
  31. DELTASONE [Concomitant]
     Active Substance: PREDNISONE
     Dosage: UNK
  32. MULTIVITAMIN WITH MINERALS [Concomitant]
     Active Substance: MINERALS\VITAMINS
     Dosage: BEDTIME
     Route: 048
  33. LORAZEPAM. [Concomitant]
     Active Substance: LORAZEPAM
     Dosage: 1 ML, PRN, Q1HR
  34. CELEXA [Concomitant]
     Active Substance: CITALOPRAM HYDROBROMIDE
     Dosage: 10 MG, QD
     Route: 048

REACTIONS (79)
  - Loss of personal independence in daily activities [Unknown]
  - Interstitial lung disease [Unknown]
  - Depression [Recovering/Resolving]
  - Hypoaesthesia [Unknown]
  - Oedema peripheral [Unknown]
  - Productive cough [Unknown]
  - Pyrexia [Recovered/Resolved]
  - Hospitalisation [Unknown]
  - Syncope [Unknown]
  - Cough [Unknown]
  - Temperature intolerance [Unknown]
  - Electrocardiogram QT prolonged [Unknown]
  - Sleep disorder [Unknown]
  - Melaena [Recovered/Resolved]
  - Cachexia [Unknown]
  - Blood chloride decreased [Unknown]
  - Alcohol withdrawal syndrome [Unknown]
  - Decreased appetite [Recovered/Resolved]
  - Pneumonia [Recovered/Resolved]
  - Head injury [Unknown]
  - Radial nerve palsy [Unknown]
  - Pruritus [Unknown]
  - Aspartate aminotransferase increased [Unknown]
  - Lymphadenopathy mediastinal [Unknown]
  - Death [Fatal]
  - Intestinal obstruction [Unknown]
  - Vertigo [Unknown]
  - Fall [Unknown]
  - Pulmonary fibrosis [Unknown]
  - Pulmonary arterial pressure increased [Recovering/Resolving]
  - Asthenia [Unknown]
  - Fatigue [Unknown]
  - Telangiectasia [Unknown]
  - Urinary incontinence [Unknown]
  - Breath sounds abnormal [Unknown]
  - Chills [Recovered/Resolved]
  - Product dose omission [Unknown]
  - Muscular weakness [Unknown]
  - Fibrosis [Unknown]
  - Visual impairment [Unknown]
  - Red blood cell count decreased [Unknown]
  - Bronchitis [Unknown]
  - N-terminal prohormone brain natriuretic peptide increased [Unknown]
  - Dyspnoea [Recovered/Resolved]
  - Hypomagnesaemia [Unknown]
  - Arthralgia [Unknown]
  - Blood ethanol increased [Recovered/Resolved]
  - Hepatitis [Unknown]
  - Hilar lymphadenopathy [Unknown]
  - Electrocardiogram T wave inversion [Unknown]
  - White blood cell count decreased [Unknown]
  - Rhonchi [Unknown]
  - Grip strength decreased [Unknown]
  - Hypoxia [Unknown]
  - Unevaluable event [Unknown]
  - Liver function test abnormal [Unknown]
  - Lymphocyte count decreased [Unknown]
  - Blood potassium decreased [Unknown]
  - Protein urine present [Unknown]
  - Cardiomegaly [Unknown]
  - Dyspnoea exertional [Recovering/Resolving]
  - Fluid overload [Unknown]
  - Right ventricular hypertrophy [Unknown]
  - Carbon dioxide increased [Unknown]
  - Urine ketone body present [Unknown]
  - Alcohol abuse [Unknown]
  - Skin abrasion [Unknown]
  - Suture insertion [Unknown]
  - Pancreatitis [Unknown]
  - Respiratory failure [Unknown]
  - Hypokalaemia [Unknown]
  - Right ventricular enlargement [Unknown]
  - Rales [Unknown]
  - Haemoglobin decreased [Unknown]
  - Haematocrit decreased [Unknown]
  - Blood alkaline phosphatase decreased [Unknown]
  - Wheezing [Unknown]
  - Immunosuppression [Unknown]
  - Chest pain [Unknown]

NARRATIVE: CASE EVENT DATE: 20181015
